FAERS Safety Report 11908839 (Version 2)
Quarter: 2018Q4

REPORT INFORMATION
  Report Type: Spontaneous
  Country: US (occurrence: US)
  Receive Date: 20160111
  Receipt Date: 20181126
  Transmission Date: 20190204
  Serious: No
  Sender: FDA-Public Use
  Company Number: US-ACTELION PHARMACEUTICALS US, INC.-A-US2016-129615

PATIENT
  Age: 33 Year
  Sex: Female

DRUGS (8)
  1. ZAVESCA [Suspect]
     Active Substance: MIGLUSTAT
     Indication: LIPIDOSIS
     Dosage: 200 MG, TID
     Route: 048
     Dates: start: 20131218
  2. ADVIL [Concomitant]
     Active Substance: IBUPROFEN
     Dosage: 100 MG, PRN
     Dates: start: 20131216
  3. METHYLPHENIDATE. [Concomitant]
     Active Substance: METHYLPHENIDATE
     Dosage: 10 MG, BID
     Route: 048
     Dates: start: 20131216
  4. MIDOL [Concomitant]
     Active Substance: IBUPROFEN
     Dosage: UNK, PRN
     Dates: start: 20131216
  5. GABAPENTIN. [Concomitant]
     Active Substance: GABAPENTIN
     Dosage: 300 MG, BID
     Route: 048
     Dates: start: 20180323
  6. TRI-SPRINTEC [Concomitant]
     Active Substance: ETHINYL ESTRADIOL\NORGESTIMATE
     Dosage: UNK
     Dates: start: 20131216
  7. ZYRTEC [Concomitant]
     Active Substance: CETIRIZINE HYDROCHLORIDE
     Dosage: 10 MG, PRN
     Dates: start: 20150505
  8. METHYLPENTYNOL [Concomitant]
     Dosage: 10 MG, BID
     Dates: start: 20131216

REACTIONS (2)
  - Bronchitis [Unknown]
  - Sinusitis [Unknown]
